FAERS Safety Report 17836404 (Version 1)
Quarter: 2020Q2

REPORT INFORMATION
  Report Type: Report from Study
  Country: US (occurrence: US)
  Receive Date: 20200528
  Receipt Date: 20200528
  Transmission Date: 20200714
  Serious: Yes (Other)
  Sender: FDA-Public Use
  Company Number: US-GILEAD-2020-0469120

PATIENT
  Age: 58 Year
  Sex: Female

DRUGS (1)
  1. IDELALISIB [Suspect]
     Active Substance: IDELALISIB
     Indication: EXTRANODAL MARGINAL ZONE B-CELL LYMPHOMA (MALT TYPE)
     Dosage: 100 MG, BID
     Route: 065
     Dates: start: 20200221

REACTIONS (2)
  - Drug ineffective [Not Recovered/Not Resolved]
  - Disease progression [Not Recovered/Not Resolved]
